FAERS Safety Report 13762116 (Version 1)
Quarter: 2017Q3

REPORT INFORMATION
  Report Type: Spontaneous
  Country: US (occurrence: US)
  Receive Date: 20170718
  Receipt Date: 20170718
  Transmission Date: 20171127
  Serious: No
  Sender: FDA-Public Use
  Company Number: US-AMGEN-USASP2017104725

PATIENT
  Age: 64 Year
  Sex: Female

DRUGS (1)
  1. ENBREL [Suspect]
     Active Substance: ETANERCEPT
     Indication: RHEUMATOID ARTHRITIS
     Dosage: 50 MG, ONCE EVERY 10 DAYS
     Route: 065
     Dates: start: 2005, end: 201705

REACTIONS (4)
  - Off label use [Unknown]
  - Unevaluable event [Unknown]
  - Musculoskeletal stiffness [Unknown]
  - Epistaxis [Unknown]

NARRATIVE: CASE EVENT DATE: 201705
